FAERS Safety Report 18559343 (Version 3)
Quarter: 2020Q4

REPORT INFORMATION
  Report Type: Spontaneous
  Country: CH (occurrence: CH)
  Receive Date: 20201130
  Receipt Date: 20201230
  Transmission Date: 20210114
  Serious: Yes (Other)
  Sender: FDA-Public Use
  Company Number: CH-BAYER-2020-250568

PATIENT
  Sex: Female

DRUGS (7)
  1. EFFEXOR [Concomitant]
     Active Substance: VENLAFAXINE HYDROCHLORIDE
     Dosage: 37.5 MG
  2. PHYSIOTENS [Concomitant]
     Active Substance: MOXONIDINE
     Indication: BLOOD PRESSURE MANAGEMENT
     Dosage: 2.5 MG, BID
  3. ATACAND [Concomitant]
     Active Substance: CANDESARTAN CILEXETIL
     Indication: BLOOD PRESSURE MANAGEMENT
     Dosage: 1 DF, QD (IN THE EVENING)
  4. TORASEMID [Concomitant]
     Active Substance: TORSEMIDE
     Dosage: 5MG IN THE MORNING AND 5MG AT NOON
  5. BETAFERON [Suspect]
     Active Substance: INTERFERON BETA-1B
     Dosage: UNK
     Dates: start: 1998, end: 201707
  6. KLIOGEST N [Concomitant]
     Indication: OSTEOPOROSIS
     Dosage: UNK
  7. ZOCOR [Concomitant]
     Active Substance: SIMVASTATIN
     Indication: MULTIPLE SCLEROSIS
     Dosage: 60 MG

REACTIONS (12)
  - Renal impairment [Recovered/Resolved]
  - Dysuria [None]
  - Dizziness [Recovered/Resolved]
  - Proteinuria [Recovered/Resolved]
  - Sleep disorder [Recovered/Resolved]
  - Presyncope [Recovered/Resolved]
  - Depressed mood [Recovered/Resolved]
  - Blood potassium increased [Recovered/Resolved]
  - Loss of bladder sensation [None]
  - Acute myocardial infarction [None]
  - Blood sodium decreased [Recovered/Resolved]
  - Gastrointestinal motility disorder [Recovered/Resolved]

NARRATIVE: CASE EVENT DATE: 2011
